FAERS Safety Report 21178211 (Version 3)
Quarter: 2022Q3

REPORT INFORMATION
  Report Type: Report from Study
  Country: BR (occurrence: BR)
  Receive Date: 20220805
  Receipt Date: 20220816
  Transmission Date: 20221027
  Serious: Yes (Other)
  Sender: FDA-Public Use
  Company Number: BR-NOVARTISPH-NVSC2022BR154752

PATIENT
  Age: 60 Year
  Sex: Female
  Weight: 56 kg

DRUGS (3)
  1. SECUKINUMAB [Suspect]
     Active Substance: SECUKINUMAB
     Indication: Ankylosing spondylitis
     Dosage: 150 MG, QW (IN THE WEEKS 0, 1, 2, 3 AND 4)
     Route: 065
  2. SECUKINUMAB [Suspect]
     Active Substance: SECUKINUMAB
     Dosage: UNK (TREATMENT INITIATED WITH 5 AMPOULES, 1 A WEEK, AFTER THIS TO MAINTAIN 1 AMPOULE A MONTH)
     Route: 058
     Dates: start: 20220607
  3. SECUKINUMAB [Suspect]
     Active Substance: SECUKINUMAB
     Dosage: UNK, (STOPPED IN LAST WEEK)
     Route: 065

REACTIONS (24)
  - Burning sensation [Recovered/Resolved]
  - Sinusitis bacterial [Not Recovered/Not Resolved]
  - Rhinorrhoea [Recovering/Resolving]
  - Rhinitis allergic [Unknown]
  - Paraesthesia [Not Recovered/Not Resolved]
  - Hypersensitivity [Unknown]
  - Inflammation [Unknown]
  - Rash pustular [Recovering/Resolving]
  - Malaise [Unknown]
  - Erythema [Unknown]
  - Eye irritation [Unknown]
  - Oropharyngeal pain [Unknown]
  - Cough [Unknown]
  - Headache [Unknown]
  - Pruritus [Unknown]
  - Rash macular [Unknown]
  - Ear infection [Unknown]
  - Pigmentation disorder [Unknown]
  - Eye pruritus [Unknown]
  - Eye swelling [Unknown]
  - Rhinitis [Recovering/Resolving]
  - Pharyngitis [Unknown]
  - Sinusitis [Not Recovered/Not Resolved]
  - Product prescribing error [Not Recovered/Not Resolved]

NARRATIVE: CASE EVENT DATE: 20220621
